FAERS Safety Report 25304299 (Version 1)
Quarter: 2025Q2

REPORT INFORMATION
  Report Type: Spontaneous
  Country: US (occurrence: US)
  Receive Date: 20250513
  Receipt Date: 20250513
  Transmission Date: 20250717
  Serious: No
  Sender: Kenvue
  Company Number: US-KENVUE-20250404521

PATIENT
  Sex: Male

DRUGS (17)
  1. TYLENOL [Suspect]
     Active Substance: ACETAMINOPHEN
     Indication: Headache
     Route: 065
  2. TREPROSTINIL SODIUM [Concomitant]
     Active Substance: TREPROSTINIL SODIUM
     Indication: Pulmonary arterial hypertension
     Dosage: 18 MICROGRAM, FOUR TIME A DAY
     Dates: start: 2024, end: 2024
  3. TREPROSTINIL SODIUM [Concomitant]
     Active Substance: TREPROSTINIL SODIUM
     Dosage: 30 MICROGRAM, FOUR TIME A DAY
     Dates: start: 2024, end: 2024
  4. TREPROSTINIL SODIUM [Concomitant]
     Active Substance: TREPROSTINIL SODIUM
     Dosage: 54 MICROGRAM, FOUR TIME A DAY
     Dates: start: 2024
  5. TREPROSTINIL SODIUM [Concomitant]
     Active Substance: TREPROSTINIL SODIUM
     Dosage: 42 MICROGRAM, FOUR TIME A DAY
  6. TREPROSTINIL SODIUM [Concomitant]
     Active Substance: TREPROSTINIL SODIUM
     Dosage: 72 MICROGRAM, FOUR TIME A DAY
  7. TREPROSTINIL SODIUM [Concomitant]
     Active Substance: TREPROSTINIL SODIUM
     Dosage: 18 MICROGRAM, FOUR TIME A DAY
  8. TREPROSTINIL SODIUM [Concomitant]
     Active Substance: TREPROSTINIL SODIUM
     Dates: start: 202410
  9. REMODULIN [Concomitant]
     Active Substance: TREPROSTINIL
     Indication: Pulmonary arterial hypertension
     Route: 041
     Dates: start: 20250313, end: 202503
  10. REMODULIN [Concomitant]
     Active Substance: TREPROSTINIL
     Route: 041
     Dates: start: 202503, end: 202503
  11. REMODULIN [Concomitant]
     Active Substance: TREPROSTINIL
     Route: 041
     Dates: start: 202503, end: 202503
  12. REMODULIN [Concomitant]
     Active Substance: TREPROSTINIL
     Route: 041
     Dates: start: 202503
  13. REMODULIN [Concomitant]
     Active Substance: TREPROSTINIL
     Route: 041
  14. REMODULIN [Concomitant]
     Active Substance: TREPROSTINIL
     Route: 041
     Dates: start: 20250310
  15. ADCIRCA [Concomitant]
     Active Substance: TADALAFIL
     Indication: Product used for unknown indication
     Route: 065
     Dates: start: 2024
  16. OXYGEN [Concomitant]
     Active Substance: OXYGEN
     Indication: Dyspnoea exertional
     Route: 065
  17. SUMATRIPTAN [Concomitant]
     Active Substance: SUMATRIPTAN
     Indication: Headache
     Route: 065

REACTIONS (1)
  - Product use in unapproved indication [Unknown]
